FAERS Safety Report 7500234-3 (Version None)
Quarter: 2011Q2

REPORT INFORMATION
  Report Type: 
  Country: None (occurrence: None)
  Receive Date: 20110517
  Receipt Date: 20110503
  Transmission Date: 20111010
  Serious: Yes (Hospitalization)
  Sender: FDA-Public Use
  Company Number: 1000020790

PATIENT
  Age: 84 Year
  Sex: Male

DRUGS (15)
  1. AVODART [Concomitant]
  2. ATORVASTATIN CALCIUM [Concomitant]
  3. SPIRIVA [Concomitant]
  4. INDAPAMIDE [Suspect]
     Indication: HYPERTENSION
     Dosage: 1.5 MG (1.5 MG, 1 IN 1 D), ORAL
     Route: 048
     Dates: start: 20110210, end: 20110228
  5. PRAVASTATIN [Concomitant]
  6. ESCITALOPRAM [Suspect]
     Indication: DEPRESSION
     Dosage: 10 MG (10 MG, 1 IN 1 D), ORAL
     Route: 048
     Dates: start: 20110303, end: 20110305
  7. ESCITALOPRAM [Suspect]
     Indication: DEPRESSION
     Dosage: 10 MG (10 MG, 1 IN 1 D), ORAL
     Route: 048
     Dates: start: 20110330, end: 20110408
  8. NEXIUM [Suspect]
     Indication: ABDOMINAL PAIN UPPER
     Dosage: 40 MG (40 MG, 1 IN 1 D), ORAL
     Route: 048
     Dates: end: 20110422
  9. ERYTHROMYCIN [Concomitant]
  10. FORADIL [Concomitant]
  11. VASTAREL (TRIMETAZIDINE HYDROCHLORIDE) [Concomitant]
  12. BIPERIDYS (DOMPERIDONE) [Concomitant]
  13. EFFEXOR [Suspect]
     Indication: DEPRESSION
     Dosage: 37.5 MG (37.5 MG, 1 IN 1 D), ORAL
     Route: 048
     Dates: start: 20110205, end: 20110302
  14. MACROLIDES (MACROLIDES) [Concomitant]
  15. DOXAZOSIN MESYLATE [Concomitant]

REACTIONS (2)
  - DRUG INTERACTION [None]
  - HYPONATRAEMIA [None]
